FAERS Safety Report 5471182-8 (Version None)
Quarter: 2007Q3

REPORT INFORMATION
  Report Type: 
  Country: None (occurrence: None)
  Receive Date: 20070928
  Receipt Date: 20070723
  Transmission Date: 20080115
  Serious: No
  Sender: FDA-Public Use
  Company Number: A0645589A

PATIENT
  Age: 64 Year
  Sex: Female

DRUGS (4)
  1. FLOVENT [Suspect]
     Indication: ASTHMA
     Route: 055
     Dates: start: 20030101
  2. AVALIDE [Concomitant]
  3. COMBIVENT [Concomitant]
  4. UNKNOWN MEDICATION [Concomitant]

REACTIONS (3)
  - DYSPHONIA [None]
  - PHARMACEUTICAL PRODUCT COMPLAINT [None]
  - VIRAL UPPER RESPIRATORY TRACT INFECTION [None]
